FAERS Safety Report 24678882 (Version 1)
Quarter: 2024Q4

REPORT INFORMATION
  Report Type: Spontaneous
  Country: US (occurrence: US)
  Receive Date: 20241129
  Receipt Date: 20241129
  Transmission Date: 20250114
  Serious: Yes (Hospitalization)
  Sender: Vantive US Healthcare
  Company Number: US-VANTIVE-2024VAN021358

PATIENT
  Sex: Female

DRUGS (1)
  1. EXTRANEAL [Suspect]
     Active Substance: CALCIUM CHLORIDE\ICODEXTRIN\MAGNESIUM CHLORIDE\SODIUM CHLORIDE\SODIUM LACTATE
     Dosage: 12-HOUR DWELL (LAST FILL)
     Route: 033

REACTIONS (4)
  - Constipation [Recovered/Resolved]
  - Device occlusion [Recovered/Resolved]
  - Treatment noncompliance [Unknown]
  - Abdominal discomfort [Recovered/Resolved]
